FAERS Safety Report 9684102 (Version 1)
Quarter: 2013Q4

REPORT INFORMATION
  Report Type: Report from Study
  Country: US (occurrence: US)
  Receive Date: 20131112
  Receipt Date: 20131112
  Transmission Date: 20140711
  Serious: Yes (Other)
  Sender: FDA-Public Use
  Company Number: US-ROCHE-1300445

PATIENT
  Sex: 0

DRUGS (10)
  1. BEVACIZUMAB [Suspect]
     Indication: COLORECTAL CANCER METASTATIC
     Dosage: AT 3 MONTHS
     Route: 065
  2. BEVACIZUMAB [Suspect]
     Dosage: AT 6 MONTHS
     Route: 065
  3. IRINOTECAN [Suspect]
     Indication: COLORECTAL CANCER METASTATIC
     Dosage: 90-200 MG/M2 AT 3 MONTHS
     Route: 065
  4. IRINOTECAN [Suspect]
     Dosage: AT 6 MONTHS
     Route: 065
  5. FLOXURIDINE [Suspect]
     Indication: COLORECTAL CANCER METASTATIC
     Dosage: 0.12 MG/KG X VOLUME/FLOW RATE AT 3 MONTHS
     Route: 065
  6. FLOXURIDINE [Suspect]
     Dosage: AT 6 MONTHS
     Route: 065
  7. 5-FLUOROURACIL [Suspect]
     Indication: COLORECTAL CANCER METASTATIC
     Route: 065
  8. LEUCOVORIN [Suspect]
     Indication: COLORECTAL CANCER METASTATIC
     Route: 065
  9. DEXAMETHASONE [Suspect]
     Indication: COLORECTAL CANCER METASTATIC
     Route: 065
  10. OXALIPLATIN [Suspect]
     Indication: COLORECTAL CANCER METASTATIC
     Route: 065

REACTIONS (5)
  - Toxicity to various agents [Unknown]
  - Hyperbilirubinaemia [Unknown]
  - Neuropathy peripheral [Unknown]
  - Diarrhoea [Unknown]
  - Thrombosis [Unknown]
